FAERS Safety Report 9853548 (Version 5)
Quarter: 2014Q1

REPORT INFORMATION
  Report Type: Report from Study
  Country: None (occurrence: KR)
  Receive Date: 20140129
  Receipt Date: 20140224
  Transmission Date: 20141002
  Serious: Yes (Hospitalization)
  Sender: FDA-Public Use
  Company Number: KR-ONYX-2014-0127

PATIENT
  Age: 58 Year
  Sex: Female

DRUGS (21)
  1. CARFILZOMIB [Suspect]
     Indication: PLASMA CELL MYELOMA
     Route: 042
     Dates: start: 20140106, end: 20140107
  2. CARFILZOMIB [Suspect]
     Route: 042
     Dates: start: 20140113, end: 20140114
  3. CARFILZOMIB [Suspect]
     Route: 042
     Dates: start: 20140203
  4. DEXAMETHASONE [Suspect]
     Indication: PLASMA CELL MYELOMA
     Route: 048
     Dates: start: 20140106, end: 20140114
  5. ULTRACET [Concomitant]
     Indication: BACK PAIN
     Route: 048
     Dates: start: 20131224, end: 20131227
  6. PETHIDINE HCL [Concomitant]
     Indication: PROPHYLAXIS
     Route: 030
     Dates: start: 20131226, end: 20131226
  7. ACECLOFENAC [Concomitant]
     Indication: BACK PAIN
     Route: 048
     Dates: start: 20131227, end: 20140101
  8. ACYCLOVIR [Concomitant]
     Indication: PROPHYLAXIS
     Route: 048
     Dates: start: 20140106
  9. ALLOPURINOL [Concomitant]
     Indication: PROPHYLAXIS
     Route: 048
     Dates: start: 20140106
  10. FLUCONAZOLE [Concomitant]
     Indication: PROPHYLAXIS
     Route: 048
     Dates: start: 20140106
  11. OMEPRAZOLE [Concomitant]
     Indication: PROPHYLAXIS
     Route: 048
     Dates: start: 20140106
  12. PAMIDRONATE [Concomitant]
     Indication: PROPHYLAXIS
     Route: 042
     Dates: start: 20140106
  13. SEPTRIN (SULFAMETHOXAZOLE, TRIMETHOPRIM) [Concomitant]
     Indication: PROPHYLAXIS
     Route: 048
     Dates: start: 20140106
  14. SUCRALFATE [Concomitant]
     Indication: PROPHYLAXIS
     Route: 048
     Dates: start: 20140106
  15. ZOLPIDEM TARTRATE [Concomitant]
     Indication: INSOMNIA
     Route: 048
     Dates: start: 20140107, end: 20140108
  16. CARDUUS MARIANUS (SILYMARIN) [Concomitant]
     Indication: BLOOD ALKALINE PHOSPHATASE INCREASED
     Route: 048
     Dates: start: 20140114, end: 20140119
  17. CARDUUS MARIANUS (SILYMARIN) [Concomitant]
     Indication: ASPARTATE AMINOTRANSFERASE INCREASED
  18. DEXTROSE 10% [Concomitant]
     Indication: DECREASED APPETITE
     Route: 042
     Dates: start: 20140114, end: 20140114
  19. L-ASPARTIC ACID L-ORNITHINE [Concomitant]
     Indication: BLOOD ALKALINE PHOSPHATASE INCREASED
     Route: 048
     Dates: start: 20140114, end: 20140119
  20. L-ASPARTIC ACID L-ORNITHINE [Concomitant]
     Indication: ASPARTATE AMINOTRANSFERASE INCREASED
     Route: 042
     Dates: start: 20140114, end: 20140115
  21. FUROSEMIDE [Concomitant]
     Indication: FLUID IMBALANCE
     Route: 042
     Dates: start: 20140106, end: 20140107

REACTIONS (3)
  - Pneumonitis [Recovered/Resolved]
  - Platelet count decreased [Recovered/Resolved]
  - Myalgia [Recovered/Resolved]
